FAERS Safety Report 8293775-5 (Version None)
Quarter: 2012Q2

REPORT INFORMATION
  Report Type: 
  Country: None (occurrence: None)
  Receive Date: 20120418
  Receipt Date: 20120409
  Transmission Date: 20120825
  Serious: Yes (Disabling, Other)
  Sender: FDA-Public Use
  Company Number: US-PAR PHARMACEUTICAL, INC-2011SCPR003072

PATIENT

DRUGS (2)
  1. NASONEX [Concomitant]
     Indication: SEASONAL ALLERGY
     Dosage: UNK, BID
     Route: 045
  2. CALCITONIN SALMON [Suspect]
     Indication: OSTEOPOROSIS
     Dosage: 1 SPR, DAILY IN ALTERNATE NOSTRIL
     Route: 045
     Dates: start: 20110423, end: 20110615

REACTIONS (4)
  - DEAFNESS PERMANENT [None]
  - EAR INFECTION [None]
  - VERTIGO [None]
  - DIZZINESS [None]
